FAERS Safety Report 10829429 (Version 3)
Quarter: 2015Q2

REPORT INFORMATION
  Report Type: Spontaneous
  Country: GB (occurrence: GB)
  Receive Date: 20150219
  Receipt Date: 20150515
  Transmission Date: 20150821
  Serious: Yes (Other)
  Sender: FDA-Public Use
  Company Number: GB-SA-2014SA162113

PATIENT
  Sex: Male

DRUGS (1)
  1. FABRAZYME [Suspect]
     Active Substance: AGALSIDASE BETA
     Route: 042

REACTIONS (14)
  - Left ventricular failure [Not Recovered/Not Resolved]
  - Atrial fibrillation [Not Recovered/Not Resolved]
  - Dizziness [Not Recovered/Not Resolved]
  - Fatigue [Not Recovered/Not Resolved]
  - Hypotension [Unknown]
  - Wheezing [Not Recovered/Not Resolved]
  - Sleep apnoea syndrome [Not Recovered/Not Resolved]
  - Cardiac failure [Not Recovered/Not Resolved]
  - Prostate cancer [Not Recovered/Not Resolved]
  - Tendonitis [Not Recovered/Not Resolved]
  - Contusion [Not Recovered/Not Resolved]
  - Dyspnoea [Not Recovered/Not Resolved]
  - Muscular weakness [Not Recovered/Not Resolved]
  - Asthma [Not Recovered/Not Resolved]
